FAERS Safety Report 5533249-5 (Version None)
Quarter: 2007Q4

REPORT INFORMATION
  Report Type: 
  Country: None (occurrence: None)
  Receive Date: 20071130
  Receipt Date: 20071130
  Transmission Date: 20080405
  Serious: Yes (Hospitalization)
  Sender: FDA-Public Use
  Company Number: None

PATIENT
  Sex: Female
  Weight: 47 kg

DRUGS (12)
  1. DOXORUBICIN HYDROCHLORIDE [Suspect]
     Dosage: 102 MG
  2. METHOTREXATE [Suspect]
     Dosage: 12 MG
  3. PREDNISONE [Suspect]
     Dosage: 592.5 MG
  4. VINCRISTINE SULFATE [Suspect]
     Dosage: 2 MG
  5. ATIVAN [Concomitant]
  6. BENADRYL [Concomitant]
  7. CEFAZOLIN [Concomitant]
  8. COLACE [Concomitant]
  9. ONDANSETRON [Concomitant]
  10. RANITIDINE HCL [Concomitant]
  11. TYLENOL W/ CODEINE NO. 3 [Concomitant]
  12. ZOFRAN [Concomitant]

REACTIONS (10)
  - CONVULSION [None]
  - HEADACHE [None]
  - HYPERTENSION [None]
  - INCONTINENCE [None]
  - JOINT STIFFNESS [None]
  - LOSS OF CONSCIOUSNESS [None]
  - POST PROCEDURAL COMPLICATION [None]
  - RESPIRATORY ARREST [None]
  - REVERSIBLE POSTERIOR LEUKOENCEPHALOPATHY SYNDROME [None]
  - STARING [None]
